FAERS Safety Report 8731676 (Version 5)
Quarter: 2012Q4

REPORT INFORMATION
  Report Type: 
  Country: US (occurrence: US)
  Receive Date: 20120820
  Receipt Date: 20121002
  Transmission Date: 20130627
  Serious: Yes (Hospitalization, Other)
  Sender: FDA-Public Use
  Company Number: US-PFIZER INC-2012201161

PATIENT
  Age: 67 Year
  Sex: Female

DRUGS (9)
  1. CELEBREX [Suspect]
     Dosage: 200 mg daily
  2. CLARITIN [Concomitant]
     Indication: HYPERSENSITIVITY
     Dosage: UNK
  3. MULTIVITAMINS [Concomitant]
     Dosage: UNK
  4. CALCIUM [Concomitant]
     Dosage: UNK
  5. FISH OIL [Concomitant]
     Dosage: UNK
  6. VITAMIN B6 [Concomitant]
     Dosage: UNK
  7. VITAMIN B12 [Concomitant]
     Dosage: UNK
  8. MAGNESIUM [Concomitant]
     Dosage: UNK
  9. VITAMIN C [Concomitant]
     Dosage: UNK

REACTIONS (2)
  - Arthropathy [Unknown]
  - Rotator cuff syndrome [Unknown]
